FAERS Safety Report 15467636 (Version 2)
Quarter: 2018Q4

REPORT INFORMATION
  Report Type: Spontaneous
  Country: GB (occurrence: GB)
  Receive Date: 20181005
  Receipt Date: 20181126
  Transmission Date: 20190204
  Serious: Yes (Other)
  Sender: FDA-Public Use
  Company Number: GB-REGULIS-2055714

PATIENT
  Age: 24 Month

DRUGS (1)
  1. METHYLENE BLUE. [Suspect]
     Active Substance: METHYLENE BLUE
     Route: 050
     Dates: start: 20170605

REACTIONS (7)
  - Haemolytic anaemia [Unknown]
  - Laboratory test interference [Unknown]
  - Medication error [None]
  - Blood urea increased [Unknown]
  - Methaemoglobinaemia [Unknown]
  - Hyperbilirubinaemia [Unknown]
  - Skin discolouration [Unknown]

NARRATIVE: CASE EVENT DATE: 20170605
